FAERS Safety Report 7705662-9 (Version None)
Quarter: 2011Q3

REPORT INFORMATION
  Report Type: 
  Country: None (occurrence: None)
  Receive Date: 20110823
  Receipt Date: 20110823
  Transmission Date: 20111222
  Serious: Yes (Other)
  Sender: FDA-Public Use
  Company Number: None

PATIENT
  Age: 29 Year
  Sex: Male
  Weight: 117.9352 kg

DRUGS (1)
  1. EXTRA STRENGTH TYLENOL PM [Suspect]

REACTIONS (4)
  - ABDOMINAL PAIN UPPER [None]
  - VOMITING [None]
  - CHILLS [None]
  - BODY TEMPERATURE INCREASED [None]
